FAERS Safety Report 6983465-0 (Version None)
Quarter: 2010Q3

REPORT INFORMATION
  Report Type: 
  Country: None (occurrence: None)
  Receive Date: 20100914
  Receipt Date: 20080616
  Transmission Date: 20110219
  Serious: No
  Sender: FDA-Public Use
  Company Number: US-WYE-H03998008

PATIENT
  Age: 83 Year
  Sex: Female
  Weight: 54.48 kg

DRUGS (1)
  1. ADVIL LIQUI-GELS [Suspect]
     Indication: CONTUSION
     Dosage: ONE TABLET EVERY FOUR HOURS
     Route: 048
     Dates: start: 20080504

REACTIONS (4)
  - ABDOMINAL DISTENSION [None]
  - DRUG INEFFECTIVE [None]
  - FEELING ABNORMAL [None]
  - FLATULENCE [None]
